FAERS Safety Report 19916360 (Version 1)
Quarter: 2021Q4

REPORT INFORMATION
  Report Type: Spontaneous
  Country: US (occurrence: US)
  Receive Date: 20211005
  Receipt Date: 20211005
  Transmission Date: 20220303
  Serious: No
  Sender: FDA-Public Use
  Company Number: US-BION-009411

PATIENT
  Sex: Female

DRUGS (2)
  1. PROGESTERONE [Suspect]
     Active Substance: PROGESTERONE
     Indication: Hormone replacement therapy
     Dosage: STRENGTH: 100MG
  2. ESTRADIOL [Concomitant]
     Active Substance: ESTRADIOL
     Indication: Hormone replacement therapy
     Dosage: STRENGTH:0.5 MG

REACTIONS (4)
  - Nausea [Recovering/Resolving]
  - Cold sweat [Recovering/Resolving]
  - Dizziness [Not Recovered/Not Resolved]
  - Product substitution issue [Unknown]
